FAERS Safety Report 8195437-1 (Version None)
Quarter: 2012Q1

REPORT INFORMATION
  Report Type: 
  Country: None (occurrence: None)
  Receive Date: 20120308
  Receipt Date: 20120301
  Transmission Date: 20120608
  Serious: Yes (Other)
  Sender: FDA-Public Use
  Company Number: PHEH2012US002714

PATIENT
  Sex: Male

DRUGS (7)
  1. VALTURNA [Suspect]
     Indication: BLOOD PRESSURE
  2. LABETALOL HCL [Concomitant]
     Dosage: 2 DF (100 MG), PER DAY
  3. CLONIDINE [Concomitant]
     Dosage: 2 DF (0.2 MG), DAILY
  4. PERCOCET [Concomitant]
     Dosage: 4 DF (10 MG), PER DAY
  5. TEKTURNA HCT [Concomitant]
     Indication: BLOOD PRESSURE
     Dosage: 1 DF (300/25 MG), UNK
  6. VALIUM [Concomitant]
     Dosage: 3 DF, PER DAY
  7. DELTASONE [Concomitant]
     Dosage: 2 DF(120 MG), PER DAY

REACTIONS (2)
  - MALIGNANT HYPERTENSION [None]
  - DRUG INEFFECTIVE [None]
